FAERS Safety Report 26100099 (Version 2)
Quarter: 2025Q4

REPORT INFORMATION
  Report Type: Report from Study
  Country: US (occurrence: US)
  Receive Date: 20251128
  Receipt Date: 20251217
  Transmission Date: 20260117
  Serious: Yes (Death)
  Sender: ALEXION PHARMACEUTICALS
  Company Number: US-AstraZeneca-CH-01002204A

PATIENT
  Age: 79 Year
  Sex: Female
  Weight: 52.38 kg

DRUGS (5)
  1. DAPAGLIFLOZIN [Suspect]
     Active Substance: DAPAGLIFLOZIN
     Dosage: 10 MILLIGRAM, QD
     Route: 061
     Dates: start: 20231024
  2. AMLODIPINE [Concomitant]
     Active Substance: AMLODIPINE BESYLATE
  3. ATORVASTATIN [Concomitant]
     Active Substance: ATORVASTATIN
  4. ASPIRIN [Concomitant]
     Active Substance: ASPIRIN
  5. DOCUSATE [Concomitant]
     Active Substance: DOCUSATE

REACTIONS (2)
  - Metastases to lung [Fatal]
  - Abdominal pain [Unknown]
